FAERS Safety Report 19004771 (Version 1)
Quarter: 2021Q1

REPORT INFORMATION
  Report Type: Spontaneous
  Country: PR (occurrence: PR)
  Receive Date: 20210312
  Receipt Date: 20210312
  Transmission Date: 20210420
  Serious: Yes (Death)
  Sender: FDA-Public Use
  Company Number: PR-BAYER-2021-092403

PATIENT
  Age: 83 Year
  Sex: Male

DRUGS (1)
  1. NEXAVAR [Suspect]
     Active Substance: SORAFENIB
     Indication: HEPATOBLASTOMA
     Dosage: 400 MG, BID
     Route: 048
     Dates: start: 20201222

REACTIONS (3)
  - Product use in unapproved indication [None]
  - Death [Fatal]
  - Off label use [None]

NARRATIVE: CASE EVENT DATE: 20201222
